FAERS Safety Report 7274900-1 (Version None)
Quarter: 2011Q1

REPORT INFORMATION
  Report Type: 
  Country: None (occurrence: None)
  Receive Date: 20110202
  Receipt Date: 20110202
  Transmission Date: 20110831
  Serious: Yes (Hospitalization)
  Sender: FDA-Public Use
  Company Number: None

PATIENT
  Age: 5 Month
  Sex: Male
  Weight: 6.804 kg

DRUGS (1)
  1. HYLANS TEETHING TABLETS TEETHING TABLETS [Suspect]
     Indication: TEETHING
     Dosage: 4 TABLETS EVERY OTHER DAY DENTAL
     Route: 004
     Dates: start: 20100601, end: 20110129

REACTIONS (1)
  - PYREXIA [None]
